FAERS Safety Report 11934279 (Version 5)
Quarter: 2016Q1

REPORT INFORMATION
  Report Type: Report from Study
  Country: FR (occurrence: FR)
  Receive Date: 20160121
  Receipt Date: 20160325
  Transmission Date: 20160526
  Serious: Yes (Hospitalization, Other)
  Sender: FDA-Public Use
  Company Number: FR-ASTRAZENECA-2016SE02543

PATIENT
  Age: 996 Month
  Sex: Female

DRUGS (10)
  1. ZOLPIDEM [Concomitant]
     Active Substance: ZOLPIDEM\ZOLPIDEM TARTRATE
     Dosage: IN THE EVENING
  2. TAGRISSO [Suspect]
     Active Substance: OSIMERTINIB
     Indication: SMALL CELL LUNG CANCER METASTATIC
     Route: 048
     Dates: start: 20151102, end: 20151211
  3. TAGRISSO [Suspect]
     Active Substance: OSIMERTINIB
     Indication: SMALL CELL LUNG CANCER METASTATIC
     Route: 048
     Dates: start: 20160125, end: 20160308
  4. FOSAMAX [Concomitant]
     Active Substance: ALENDRONATE SODIUM
     Indication: OSTEOPOROTIC FRACTURE
     Dosage: WEEK
  5. INNOHEP [Concomitant]
     Active Substance: TINZAPARIN SODIUM
     Indication: EMBOLISM
     Dosage: 0.35 ML
     Route: 058
     Dates: start: 2014
  6. TAGRISSO [Suspect]
     Active Substance: OSIMERTINIB
     Indication: SMALL CELL LUNG CANCER METASTATIC
     Route: 048
     Dates: start: 20160106, end: 20160125
  7. FEMARA [Concomitant]
     Active Substance: LETROZOLE
     Indication: BREAST CANCER FEMALE
     Route: 048
     Dates: start: 2015
  8. CORTANCYL [Concomitant]
     Active Substance: PREDNISONE
     Indication: ADENOCARCINOMA
     Dosage: 20 MG
     Route: 048
     Dates: start: 201512
  9. PARACETAMOL [Concomitant]
     Active Substance: ACETAMINOPHEN
  10. LISINOPRIL. [Concomitant]
     Active Substance: LISINOPRIL
     Indication: HYPERTENSION

REACTIONS (14)
  - Asthenia [Unknown]
  - Diarrhoea [Recovered/Resolved]
  - Oral candidiasis [Recovered/Resolved]
  - General physical health deterioration [Recovered/Resolved]
  - Weight decreased [Recovering/Resolving]
  - Disease progression [Not Recovered/Not Resolved]
  - Normochromic normocytic anaemia [Recovered/Resolved]
  - Food intolerance [Recovered/Resolved]
  - Dysphagia [Recovered/Resolved]
  - Food aversion [Recovered/Resolved]
  - Decreased appetite [Recovered/Resolved]
  - Mucosal inflammation [Recovered/Resolved]
  - Nausea [Recovered/Resolved]
  - Respiratory tract infection [Recovered/Resolved]

NARRATIVE: CASE EVENT DATE: 201511
